FAERS Safety Report 5013642-X (Version None)
Quarter: 2006Q2

REPORT INFORMATION
  Report Type: 
  Country: None (occurrence: None)
  Receive Date: 20060530
  Receipt Date: 20060517
  Transmission Date: 20061013
  Serious: Yes (Hospitalization)
  Sender: FDA-Public Use
  Company Number: FR-GLAXOSMITHKLINE-B0424599A

PATIENT
  Age: 17 Month
  Sex: Male
  Weight: 8.4 kg

DRUGS (1)
  1. AUGMENTIN '125' [Suspect]
     Indication: EAR INFECTION
     Dosage: 1UNIT TWICE PER DAY
     Route: 048
     Dates: start: 20060417, end: 20060425

REACTIONS (4)
  - DERMATITIS BULLOUS [None]
  - ERYTHEMA MULTIFORME [None]
  - PRURITUS [None]
  - PYREXIA [None]
